FAERS Safety Report 21254805 (Version 2)
Quarter: 2022Q3

REPORT INFORMATION
  Report Type: Spontaneous
  Country: US (occurrence: US)
  Receive Date: 20220825
  Receipt Date: 20220906
  Transmission Date: 20221027
  Serious: Yes (Death, Life-Threatening, Hospitalization)
  Sender: FDA-Public Use
  Company Number: US-TEVA-2022-US-2066561

PATIENT
  Age: 64 Year
  Sex: Male

DRUGS (7)
  1. CISPLATIN [Suspect]
     Active Substance: CISPLATIN
     Indication: Osteosarcoma metastatic
     Dosage: ADMINISTERED OVER 2 HOURS ON DAY 1
     Route: 050
  2. CISPLATIN [Suspect]
     Active Substance: CISPLATIN
     Indication: Metastases to lung
  3. DOXORUBICIN [Suspect]
     Active Substance: DOXORUBICIN
     Indication: Osteosarcoma metastatic
     Dosage: ADMINISTERED OVER 4 HOURS ON DAY 1 TO 3.
     Route: 050
  4. DOXORUBICIN [Suspect]
     Active Substance: DOXORUBICIN
     Indication: Metastases to lung
  5. IFOSFAMIDE [Suspect]
     Active Substance: IFOSFAMIDE
     Indication: Osteosarcoma metastatic
     Route: 042
  6. IFOSFAMIDE [Suspect]
     Active Substance: IFOSFAMIDE
     Indication: Metastases to lung
  7. MEROPENEM [Concomitant]
     Active Substance: MEROPENEM
     Indication: Escherichia bacteraemia
     Route: 065

REACTIONS (8)
  - Tumour lysis syndrome [Fatal]
  - Metabolic acidosis [Fatal]
  - Renal failure [Fatal]
  - Cardiac arrest [Fatal]
  - Respiratory acidosis [Fatal]
  - Hypervolaemia [Unknown]
  - Acute kidney injury [Unknown]
  - Respiratory failure [Unknown]
